FAERS Safety Report 5473741-5 (Version None)
Quarter: 2007Q4

REPORT INFORMATION
  Report Type: 
  Country: None (occurrence: None)
  Receive Date: 20071001
  Receipt Date: 20070919
  Transmission Date: 20080405
  Serious: Yes (Hospitalization)
  Sender: FDA-Public Use
  Company Number: PH-PFIZER INC-2007078306

PATIENT
  Age: 17 Year
  Sex: Male

DRUGS (2)
  1. CLINDAMYCIN HYDROCHLORIDE [Suspect]
     Indication: PHARYNGOTONSILLITIS
  2. MUCOLITIC [Concomitant]

REACTIONS (4)
  - EAR PAIN [None]
  - ODYNOPHAGIA [None]
  - PYREXIA [None]
  - SNORING [None]
